FAERS Safety Report 10439416 (Version 1)
Quarter: 2014Q3

REPORT INFORMATION
  Report Type: Spontaneous
  Country: US (occurrence: US)
  Receive Date: 20140908
  Receipt Date: 20140908
  Transmission Date: 20150326
  Serious: Yes (Other)
  Sender: FDA-Public Use
  Company Number: US-ELI_LILLY_AND_COMPANY-US201408010598

PATIENT
  Age: 69 Year
  Sex: Male

DRUGS (2)
  1. INSULIN HUMAN [Suspect]
     Active Substance: INSULIN HUMAN
     Indication: TYPE 2 DIABETES MELLITUS
     Dosage: UNK
     Route: 065
     Dates: start: 2010, end: 20140718
  2. INSULIN HUMAN [Suspect]
     Active Substance: INSULIN HUMAN
     Dosage: 13 U, TID
     Route: 065
     Dates: start: 20140827

REACTIONS (2)
  - Nephropathy [Unknown]
  - Extra dose administered [Unknown]

NARRATIVE: CASE EVENT DATE: 20140827
